FAERS Safety Report 20531267 (Version 2)
Quarter: 2022Q2

REPORT INFORMATION
  Report Type: Spontaneous
  Country: JP (occurrence: JP)
  Receive Date: 20220301
  Receipt Date: 20220516
  Transmission Date: 20220721
  Serious: No
  Sender: FDA-Public Use
  Company Number: JP-GLAXOSMITHKLINE-JP2022JPN035273

PATIENT

DRUGS (4)
  1. SOTROVIMAB [Suspect]
     Active Substance: SOTROVIMAB
     Indication: COVID-19
     Dosage: 500 MG/DAY
     Route: 041
     Dates: start: 20220220, end: 20220220
  2. LULICONAZOLE [Suspect]
     Active Substance: LULICONAZOLE
     Dosage: UNK, AS NEEDED
  3. CALONAL [Suspect]
     Active Substance: ACETAMINOPHEN
     Indication: COVID-19
     Dosage: 400 MG/DOSE, AS NEEDED
     Route: 048
     Dates: start: 20220221
  4. DEXTROMETHORPHAN HYDROBROMIDE [Suspect]
     Active Substance: DEXTROMETHORPHAN HYDROBROMIDE
     Indication: COVID-19
     Dosage: 15 MG/DOSE, AS NEEDED
     Route: 048
     Dates: start: 20220221

REACTIONS (1)
  - Exposure during pregnancy [Unknown]
